FAERS Safety Report 7548985-9 (Version None)
Quarter: 2011Q2

REPORT INFORMATION
  Report Type: 
  Country: None (occurrence: None)
  Receive Date: 20110615
  Receipt Date: 20110603
  Transmission Date: 20111010
  Serious: Yes (Death, Other)
  Sender: FDA-Public Use
  Company Number: JP-ROCHE-769594

PATIENT
  Sex: Male
  Weight: 40 kg

DRUGS (9)
  1. AVASTIN [Suspect]
     Indication: LUNG ADENOCARCINOMA RECURRENT
     Route: 041
     Dates: start: 20110106, end: 20110331
  2. RAMELTEON [Concomitant]
     Dosage: FORM: INTRAVENOUS (NOT OTHERWISE SPECIFIED), DRUG: NASEA(RAMOSETRON HYDROCHLORIDE)
     Route: 042
     Dates: start: 20110106, end: 20110331
  3. DEXART [Concomitant]
     Dosage: FORM: INTRAVENOUS(NOT OTHERWISE SPECIFIED)
     Route: 042
     Dates: start: 20110106, end: 20110331
  4. MUCOSOLVAN [Concomitant]
     Dosage: DRUG: MUCOSOLVAN(AMBROXOL HYDROCHLORIDE)
     Route: 048
     Dates: start: 20061011, end: 20110331
  5. PANVITAN [Concomitant]
     Dosage: DRUG: PANVITAN(RETINOL_CALCIFEROL COMBINED DRUG)
     Route: 048
     Dates: start: 20101005, end: 20110331
  6. CARBOPLATIN [Suspect]
     Indication: LUNG ADENOCARCINOMA
     Dosage: NOTE: DOSAGE IS UNCERTAIN.
     Route: 041
  7. ALIMTA [Concomitant]
     Indication: LUNG ADENOCARCINOMA RECURRENT
     Route: 041
     Dates: start: 20110106, end: 20110331
  8. CLARITHROMYCIN [Concomitant]
     Route: 048
     Dates: start: 20070713, end: 20110331
  9. LOXONIN [Concomitant]
     Dosage: FORM:JELLY,DOSSAGE :UNCERTAIN.
     Route: 061
     Dates: start: 20110303

REACTIONS (3)
  - GASTRIC ULCER [None]
  - HAEMATEMESIS [None]
  - CARDIO-RESPIRATORY ARREST [None]
